FAERS Safety Report 18532318 (Version 1)
Quarter: 2020Q4

REPORT INFORMATION
  Report Type: Spontaneous
  Country: ES (occurrence: ES)
  Receive Date: 20201123
  Receipt Date: 20201123
  Transmission Date: 20210114
  Serious: Yes (Hospitalization, Other)
  Sender: FDA-Public Use
  Company Number: ES-AUROBINDO-AUR-APL-2020-057014

PATIENT
  Age: 87 Year
  Sex: Female

DRUGS (16)
  1. AMLODIPINE [Concomitant]
     Active Substance: AMLODIPINE BESYLATE
     Indication: ESSENTIAL HYPERTENSION
     Dosage: 10 MILLIGRAM, ONCE A DAY
     Route: 048
     Dates: start: 20180827
  2. SIMVASTATIN. [Concomitant]
     Active Substance: SIMVASTATIN
     Indication: ACUTE MYOCARDIAL INFARCTION
     Dosage: 40 MILLIGRAM, ONCE A DAY
     Route: 048
  3. OMEPRAZOLE. [Concomitant]
     Active Substance: OMEPRAZOLE
     Indication: ABDOMINAL PAIN
     Dosage: 20 MILLIGRAM, TWO TIMES A DAY
     Route: 048
     Dates: start: 20201022
  4. SINTROM [Interacting]
     Active Substance: ACENOCOUMAROL
     Indication: ACUTE MYOCARDIAL INFARCTION
     Dosage: 4 MILLIGRAM, ONCE A DAY
     Route: 048
     Dates: start: 20170904, end: 20201102
  5. GLYCERYL TRINITRATE [Concomitant]
     Active Substance: NITROGLYCERIN
     Indication: MYOCARDIAL ISCHAEMIA
     Dosage: 0.8 MILLIGRAM, 15 DAY
     Route: 060
  6. PARACETAMOL/CODEINE [Concomitant]
     Active Substance: ACETAMINOPHEN\CODEINE PHOSPHATE
     Indication: BACK PAIN
     Dosage: 500 MILLIGRAM, TWO TIMES A DAY
     Route: 048
     Dates: start: 20201022
  7. CLEBOPRIDE;SIMETICONE [Concomitant]
     Indication: ABDOMINAL PAIN
     Dosage: 0.5 MILLIGRAM, TWO TIMES A DAY
     Route: 048
     Dates: start: 20200225
  8. GLYCERYL TRINITRATE [Concomitant]
     Active Substance: NITROGLYCERIN
     Indication: CATARACT
     Dosage: 15 MILLIGRAM, ONCE A DAY
     Route: 062
     Dates: start: 20180523
  9. CAFFEINE CITRATE;GLYCERYL TRINITRATE [Concomitant]
     Indication: MYOCARDIAL ISCHAEMIA
     Dosage: 1 MILLIGRAM
     Route: 060
     Dates: start: 20170906
  10. HALOPERIDOL. [Concomitant]
     Active Substance: HALOPERIDOL
     Indication: ANXIETY
     Dosage: 0.4 MILLIGRAM, TWO TIMES A DAY
     Route: 048
     Dates: start: 20200225
  11. METOCLOPRAMIDE. [Concomitant]
     Active Substance: METOCLOPRAMIDE
     Indication: RENAL COLIC
     Dosage: 10 MILLIGRAM, 3 TIMES A DAY
     Route: 048
     Dates: start: 20200801
  12. FUROSEMIDE. [Concomitant]
     Active Substance: FUROSEMIDE
     Indication: ACUTE MYOCARDIAL INFARCTION
     Dosage: 40 MILLIGRAM, ONCE A DAY
     Route: 048
     Dates: start: 20161022
  13. NAPROXEN SODIUM. [Suspect]
     Active Substance: NAPROXEN SODIUM
     Indication: BACK PAIN
     Dosage: 550 MILLIGRAM, TWO TIMES A DAY
     Route: 065
     Dates: start: 20201022, end: 20201102
  14. BOI-K ASPARTICO [Concomitant]
     Active Substance: ASPARTIC ACID\POTASSIUM ASCORBATE
     Indication: CARDIAC FAILURE
     Dosage: UNK UNK, ONCE A DAY
     Route: 048
     Dates: start: 20180103
  15. ZOLPIDEM [Concomitant]
     Active Substance: ZOLPIDEM TARTRATE
     Indication: INSOMNIA
     Dosage: 10 MILLIGRAM, ONCE A DAY
     Route: 048
     Dates: start: 20200821
  16. FORMODUAL [Concomitant]
     Active Substance: BECLOMETHASONE DIPROPIONATE\FORMOTEROL FUMARATE
     Indication: BRONCHITIS
     Dosage: 1 DOSAGE FORM, TWO TIMES A DAY
     Route: 055
     Dates: start: 20180509

REACTIONS (1)
  - Gastrointestinal haemorrhage [Recovering/Resolving]

NARRATIVE: CASE EVENT DATE: 20201102
